FAERS Safety Report 6572152-9 (Version None)
Quarter: 2010Q1

REPORT INFORMATION
  Report Type: 
  Country: None (occurrence: None)
  Receive Date: 20100205
  Receipt Date: 20100202
  Transmission Date: 20100710
  Serious: Yes (Other)
  Sender: FDA-Public Use
  Company Number: A0842601A

PATIENT
  Age: 78 Year
  Sex: Male

DRUGS (11)
  1. LOVAZA [Suspect]
     Dosage: 2G TWICE PER DAY
     Route: 048
     Dates: start: 20090701, end: 20100125
  2. ACEON [Concomitant]
  3. SINGULAIR [Concomitant]
  4. ALLEGRA [Concomitant]
  5. PATANASE [Concomitant]
  6. NASONEX [Concomitant]
  7. NEXIUM [Concomitant]
  8. TRAMADOL [Concomitant]
  9. CYMBALTA [Concomitant]
  10. COENZYME Q10 [Concomitant]
  11. ECOTRIN [Concomitant]

REACTIONS (2)
  - COAGULOPATHY [None]
  - INCONTINENCE [None]
